FAERS Safety Report 24226251 (Version 2)
Quarter: 2024Q3

REPORT INFORMATION
  Report Type: Spontaneous
  Country: US (occurrence: US)
  Receive Date: 20240820
  Receipt Date: 20240906
  Transmission Date: 20241017
  Serious: No
  Sender: CSL BEHRING
  Company Number: US-BEH-2024177089

PATIENT
  Age: 51 Year
  Sex: Male

DRUGS (1)
  1. PRIVIGEN [Suspect]
     Active Substance: HUMAN IMMUNOGLOBULIN G
     Indication: Toxic shock syndrome staphylococcal
     Dosage: 80 G
     Route: 065

REACTIONS (5)
  - Pruritus [Unknown]
  - Adverse drug reaction [Unknown]
  - Incorrect product administration duration [Unknown]
  - Off label use [Unknown]
  - Off label use [Unknown]
